FAERS Safety Report 7772267-3 (Version None)
Quarter: 2011Q3

REPORT INFORMATION
  Report Type: 
  Country: None (occurrence: None)
  Receive Date: 20110922
  Receipt Date: 20101110
  Transmission Date: 20111222
  Serious: No
  Sender: FDA-Public Use
  Company Number: US-ASTRAZENECA-2010SE53846

PATIENT
  Age: 26 Year
  Sex: Male

DRUGS (6)
  1. CELEXA [Concomitant]
     Route: 065
  2. SEROQUEL XR [Suspect]
     Indication: BIPOLAR DISORDER
     Route: 048
     Dates: start: 20100101, end: 20100101
  3. VASTAREL [Concomitant]
     Route: 065
  4. SEROQUEL XR [Suspect]
     Indication: ATTENTION DEFICIT/HYPERACTIVITY DISORDER
     Route: 048
     Dates: start: 20100101, end: 20100101
  5. SEROQUEL XR [Suspect]
     Route: 048
     Dates: start: 20100101, end: 20100101
  6. SEROQUEL XR [Suspect]
     Route: 048
     Dates: start: 20100101, end: 20100101

REACTIONS (8)
  - HYPERHIDROSIS [None]
  - DYSKINESIA [None]
  - STRABISMUS [None]
  - TREMOR [None]
  - AMNESIA [None]
  - INCREASED APPETITE [None]
  - WEIGHT INCREASED [None]
  - FEELING ABNORMAL [None]
